FAERS Safety Report 25988565 (Version 1)
Quarter: 2025Q4

REPORT INFORMATION
  Report Type: Spontaneous
  Country: US (occurrence: US)
  Receive Date: 20251103
  Receipt Date: 20251103
  Transmission Date: 20260117
  Serious: Yes (Other)
  Sender: AMNEAL
  Company Number: US-AMNEAL-2025-AMRX-04188

PATIENT
  Age: 63 Year
  Sex: Female

DRUGS (1)
  1. BACLOFEN [Suspect]
     Active Substance: BACLOFEN
     Indication: Muscle spasticity
     Dosage: 175.5 MG DAILY
     Route: 037

REACTIONS (4)
  - Burning sensation [Unknown]
  - Dysgeusia [Unknown]
  - Skin burning sensation [Unknown]
  - Device allergy [Unknown]

NARRATIVE: CASE EVENT DATE: 20250905
